FAERS Safety Report 18259613 (Version 1)
Quarter: 2020Q3

REPORT INFORMATION
  Report Type: Spontaneous
  Country: US (occurrence: US)
  Receive Date: 20200912
  Receipt Date: 20200912
  Transmission Date: 20201103
  Serious: Yes (Other)
  Sender: FDA-Public Use
  Company Number: US-B.I. PHARMACEUTICALS,INC./RIDGEFIELD-2020-BI-045322

PATIENT
  Age: 64 Year
  Sex: Male

DRUGS (1)
  1. PRADAXA [Suspect]
     Active Substance: DABIGATRAN ETEXILATE MESYLATE
     Indication: ATRIAL FIBRILLATION
     Route: 065

REACTIONS (9)
  - Pericardial effusion [Unknown]
  - Hypotension [Unknown]
  - Shoulder arthroplasty [Unknown]
  - Pulmonary embolism [Unknown]
  - Chest pain [Unknown]
  - Pulmonary infarction [Unknown]
  - Dyspnoea [Unknown]
  - Pleural effusion [Unknown]
  - Dyspnoea exertional [Unknown]
